FAERS Safety Report 4876340-9 (Version None)
Quarter: 2006Q1

REPORT INFORMATION
  Report Type: 
  Country: None (occurrence: None)
  Receive Date: 20060110
  Receipt Date: 20060103
  Transmission Date: 20060701
  Serious: Yes (Other)
  Sender: FDA-Public Use
  Company Number: PHBS2006PT00537

PATIENT
  Age: 22 Year
  Sex: Male

DRUGS (1)
  1. RITALIN LA [Suspect]
     Route: 065

REACTIONS (7)
  - ALCOHOLIC [None]
  - ARTHRALGIA [None]
  - CONDITION AGGRAVATED [None]
  - DEHYDRATION [None]
  - DRY MOUTH [None]
  - POLYDIPSIA [None]
  - POLYURIA [None]
